FAERS Safety Report 7029447-4 (Version None)
Quarter: 2010Q4

REPORT INFORMATION
  Report Type: 
  Country: None (occurrence: None)
  Receive Date: 20101005
  Receipt Date: 20100927
  Transmission Date: 20110411
  Serious: Yes (Death, Hospitalization, Other)
  Sender: FDA-Public Use
  Company Number: US-AMGEN-US351531

PATIENT
  Sex: Female
  Weight: 54.5 kg

DRUGS (24)
  1. NPLATE [Suspect]
     Indication: IDIOPATHIC THROMBOCYTOPENIC PURPURA
     Dates: start: 20090212, end: 20090409
  2. ATENOLOL [Concomitant]
  3. ADVAIR DISKUS 100/50 [Concomitant]
  4. ZOLOFT [Concomitant]
  5. REGLAN [Concomitant]
  6. OS-CAL [Concomitant]
  7. SPIRONOLACTONE [Concomitant]
  8. FLONASE [Concomitant]
  9. COMBIVENT [Concomitant]
  10. HYDROCORTISONE ACETATE/PRAMOXINE HYDROCHLORIDE [Concomitant]
  11. ANTIVERT [Concomitant]
  12. XANAX [Concomitant]
  13. OXYGEN [Concomitant]
  14. PREDNISONE [Concomitant]
  15. LASIX [Concomitant]
  16. ANUSOL [Concomitant]
  17. ATIVAN, BENADRYL + HALDOL [Concomitant]
  18. TYLENOL [Concomitant]
  19. ROXANOL [Concomitant]
     Route: 060
  20. ZOFRAN [Concomitant]
  21. PHENERGAN [Concomitant]
  22. SCOPOLAMINE [Concomitant]
  23. RESTORIL [Concomitant]
  24. MIRALAX [Concomitant]

REACTIONS (11)
  - ANAEMIA [None]
  - ASCITES [None]
  - ASTHENIA [None]
  - CARDIOMYOPATHY [None]
  - CHRONIC OBSTRUCTIVE PULMONARY DISEASE [None]
  - CLOSTRIDIUM DIFFICILE COLITIS [None]
  - HEPATIC CIRRHOSIS [None]
  - IDIOPATHIC THROMBOCYTOPENIC PURPURA [None]
  - LETHARGY [None]
  - PERFORMANCE STATUS DECREASED [None]
  - THERAPEUTIC RESPONSE DECREASED [None]
